FAERS Safety Report 9536773 (Version 3)
Quarter: 2013Q4

REPORT INFORMATION
  Report Type: Report from Study
  Country: DE (occurrence: DE)
  Receive Date: 20130919
  Receipt Date: 20131031
  Transmission Date: 20140711
  Serious: Yes (Hospitalization)
  Sender: FDA-Public Use
  Company Number: DE-BAYER-2013-110794

PATIENT
  Sex: Male
  Weight: 74 kg

DRUGS (2)
  1. SORAFENIB (RAF KINASE INHIBITOR) [Suspect]
     Indication: HEPATOCELLULAR CARCINOMA
     Dosage: TOTAL DOSE OF THE LAST ADMINISTRATION: 800 MG
     Route: 048
     Dates: start: 20130801
  2. DOXORUBICIN [Suspect]
     Indication: HEPATOCELLULAR CARCINOMA
     Dosage: TOTAL DOSE OF THE LAST ADMINISTRATION: 114.6 MG
     Route: 042
     Dates: start: 20130730

REACTIONS (1)
  - Anal abscess [Recovered/Resolved]
